FAERS Safety Report 26157484 (Version 1)
Quarter: 2025Q4

REPORT INFORMATION
  Report Type: Spontaneous
  Country: GB (occurrence: GB)
  Receive Date: 20251215
  Receipt Date: 20251215
  Transmission Date: 20260119
  Serious: Yes (Other)
  Sender: MYLAN
  Company Number: None

PATIENT
  Age: 61 Year
  Sex: Female
  Weight: 73 kg

DRUGS (36)
  1. ATORVASTATIN [Suspect]
     Active Substance: ATORVASTATIN
     Indication: Product used for unknown indication
     Dosage: 20 MILLIGRAM, QD
     Dates: start: 20251121
  2. ATORVASTATIN [Suspect]
     Active Substance: ATORVASTATIN
     Dosage: 20 MILLIGRAM, QD
     Route: 065
     Dates: start: 20251121
  3. ATORVASTATIN [Suspect]
     Active Substance: ATORVASTATIN
     Dosage: 20 MILLIGRAM, QD
     Route: 065
     Dates: start: 20251121
  4. ATORVASTATIN [Suspect]
     Active Substance: ATORVASTATIN
     Dosage: 20 MILLIGRAM, QD
     Dates: start: 20251121
  5. Cetraben [Concomitant]
     Indication: Ill-defined disorder
     Dosage: UNK (APPLY 4-5 TIMES A DAY)
  6. Cetraben [Concomitant]
     Dosage: UNK (APPLY 4-5 TIMES A DAY)
     Route: 065
  7. Cetraben [Concomitant]
     Dosage: UNK (APPLY 4-5 TIMES A DAY)
     Route: 065
  8. Cetraben [Concomitant]
     Dosage: UNK (APPLY 4-5 TIMES A DAY)
  9. FEXOFENADINE [Concomitant]
     Active Substance: FEXOFENADINE HYDROCHLORIDE
     Indication: Ill-defined disorder
     Dosage: 1 DOSAGE FORM, QD (TAKE ONE DAILY)
     Dates: start: 20251023, end: 20251122
  10. FEXOFENADINE [Concomitant]
     Active Substance: FEXOFENADINE HYDROCHLORIDE
     Dosage: 1 DOSAGE FORM, QD (TAKE ONE DAILY)
     Route: 065
     Dates: start: 20251023, end: 20251122
  11. FEXOFENADINE [Concomitant]
     Active Substance: FEXOFENADINE HYDROCHLORIDE
     Dosage: 1 DOSAGE FORM, QD (TAKE ONE DAILY)
     Route: 065
     Dates: start: 20251023, end: 20251122
  12. FEXOFENADINE [Concomitant]
     Active Substance: FEXOFENADINE HYDROCHLORIDE
     Dosage: 1 DOSAGE FORM, QD (TAKE ONE DAILY)
     Dates: start: 20251023, end: 20251122
  13. HYDROCORTISONE [Concomitant]
     Active Substance: HYDROCORTISONE
     Indication: Ill-defined disorder
     Dosage: UNK, BID (APPLY SPARINGLY TO AFFECTED AREAS TWICE DAILY)
     Dates: start: 20251126
  14. HYDROCORTISONE [Concomitant]
     Active Substance: HYDROCORTISONE
     Dosage: UNK, BID (APPLY SPARINGLY TO AFFECTED AREAS TWICE DAILY)
     Route: 065
     Dates: start: 20251126
  15. HYDROCORTISONE [Concomitant]
     Active Substance: HYDROCORTISONE
     Dosage: UNK, BID (APPLY SPARINGLY TO AFFECTED AREAS TWICE DAILY)
     Route: 065
     Dates: start: 20251126
  16. HYDROCORTISONE [Concomitant]
     Active Substance: HYDROCORTISONE
     Dosage: UNK, BID (APPLY SPARINGLY TO AFFECTED AREAS TWICE DAILY)
     Dates: start: 20251126
  17. KETOCONAZOLE [Concomitant]
     Active Substance: KETOCONAZOLE
     Indication: Ill-defined disorder
     Dosage: UNK (USE TWICE WEEKLY FOR 2-4 WEEKS, THEN ONCE EVERY...)
  18. KETOCONAZOLE [Concomitant]
     Active Substance: KETOCONAZOLE
     Dosage: UNK (USE TWICE WEEKLY FOR 2-4 WEEKS, THEN ONCE EVERY...)
     Route: 065
  19. KETOCONAZOLE [Concomitant]
     Active Substance: KETOCONAZOLE
     Dosage: UNK (USE TWICE WEEKLY FOR 2-4 WEEKS, THEN ONCE EVERY...)
     Route: 065
  20. KETOCONAZOLE [Concomitant]
     Active Substance: KETOCONAZOLE
     Dosage: UNK (USE TWICE WEEKLY FOR 2-4 WEEKS, THEN ONCE EVERY...)
  21. ESCITALOPRAM [Concomitant]
     Active Substance: ESCITALOPRAM OXALATE
     Indication: Ill-defined disorder
     Dosage: 1 DOSAGE FORM, QD (TAKE ONE DAILY)
     Dates: start: 20251107, end: 20251205
  22. ESCITALOPRAM [Concomitant]
     Active Substance: ESCITALOPRAM OXALATE
     Dosage: 1 DOSAGE FORM, QD (TAKE ONE DAILY)
     Route: 065
     Dates: start: 20251107, end: 20251205
  23. ESCITALOPRAM [Concomitant]
     Active Substance: ESCITALOPRAM OXALATE
     Dosage: 1 DOSAGE FORM, QD (TAKE ONE DAILY)
     Route: 065
     Dates: start: 20251107, end: 20251205
  24. ESCITALOPRAM [Concomitant]
     Active Substance: ESCITALOPRAM OXALATE
     Dosage: 1 DOSAGE FORM, QD (TAKE ONE DAILY)
     Dates: start: 20251107, end: 20251205
  25. BENZALKONIUM CHLORIDE\DIMETHICONE\HYDROCORTISONE\NYSTATIN [Concomitant]
     Active Substance: BENZALKONIUM CHLORIDE\DIMETHICONE\HYDROCORTISONE\NYSTATIN
     Indication: Ill-defined disorder
     Dosage: UNK, TID (APPLY TO AFFECTED AREA 3 TIMES/DAY FOR MAX. 7 DAYS)
     Dates: start: 20251126, end: 20251203
  26. BENZALKONIUM CHLORIDE\DIMETHICONE\HYDROCORTISONE\NYSTATIN [Concomitant]
     Active Substance: BENZALKONIUM CHLORIDE\DIMETHICONE\HYDROCORTISONE\NYSTATIN
     Dosage: UNK, TID (APPLY TO AFFECTED AREA 3 TIMES/DAY FOR MAX. 7 DAYS)
     Route: 065
     Dates: start: 20251126, end: 20251203
  27. BENZALKONIUM CHLORIDE\DIMETHICONE\HYDROCORTISONE\NYSTATIN [Concomitant]
     Active Substance: BENZALKONIUM CHLORIDE\DIMETHICONE\HYDROCORTISONE\NYSTATIN
     Dosage: UNK, TID (APPLY TO AFFECTED AREA 3 TIMES/DAY FOR MAX. 7 DAYS)
     Route: 065
     Dates: start: 20251126, end: 20251203
  28. BENZALKONIUM CHLORIDE\DIMETHICONE\HYDROCORTISONE\NYSTATIN [Concomitant]
     Active Substance: BENZALKONIUM CHLORIDE\DIMETHICONE\HYDROCORTISONE\NYSTATIN
     Dosage: UNK, TID (APPLY TO AFFECTED AREA 3 TIMES/DAY FOR MAX. 7 DAYS)
     Dates: start: 20251126, end: 20251203
  29. HYDROXOCOBALAMIN [Concomitant]
     Active Substance: HYDROXOCOBALAMIN
     Indication: Ill-defined disorder
     Dosage: UNK, Q3MONTHS (IM INJECTION EVERY 3 MONTHS)
     Dates: start: 20240720
  30. HYDROXOCOBALAMIN [Concomitant]
     Active Substance: HYDROXOCOBALAMIN
     Dosage: UNK, Q3MONTHS (IM INJECTION EVERY 3 MONTHS)
     Route: 030
     Dates: start: 20240720
  31. HYDROXOCOBALAMIN [Concomitant]
     Active Substance: HYDROXOCOBALAMIN
     Dosage: UNK, Q3MONTHS (IM INJECTION EVERY 3 MONTHS)
     Route: 030
     Dates: start: 20240720
  32. HYDROXOCOBALAMIN [Concomitant]
     Active Substance: HYDROXOCOBALAMIN
     Dosage: UNK, Q3MONTHS (IM INJECTION EVERY 3 MONTHS)
     Dates: start: 20240720
  33. URSODIOL [Concomitant]
     Active Substance: URSODIOL
     Indication: Ill-defined disorder
     Dosage: UNK, BID (TWICE DAILY)
     Dates: start: 20250218
  34. URSODIOL [Concomitant]
     Active Substance: URSODIOL
     Dosage: UNK, BID (TWICE DAILY)
     Route: 065
     Dates: start: 20250218
  35. URSODIOL [Concomitant]
     Active Substance: URSODIOL
     Dosage: UNK, BID (TWICE DAILY)
     Route: 065
     Dates: start: 20250218
  36. URSODIOL [Concomitant]
     Active Substance: URSODIOL
     Dosage: UNK, BID (TWICE DAILY)
     Dates: start: 20250218

REACTIONS (2)
  - Myalgia [Recovering/Resolving]
  - Vomiting [Recovering/Resolving]
